FAERS Safety Report 18904028 (Version 2)
Quarter: 2022Q3

REPORT INFORMATION
  Report Type: Spontaneous
  Country: JP (occurrence: JP)
  Receive Date: 20210217
  Receipt Date: 20220714
  Transmission Date: 20221026
  Serious: Yes (Hospitalization, Disabling, Other)
  Sender: FDA-Public Use
  Company Number: JP-GSKJP-JP2021JPN017202AA

PATIENT

DRUGS (4)
  1. LAMICTAL [Suspect]
     Active Substance: LAMOTRIGINE
     Indication: Bipolar disorder
     Dosage: 25 MG, QD
     Route: 048
     Dates: start: 20180105, end: 20180123
  2. CYMBALTA [Concomitant]
     Active Substance: DULOXETINE HYDROCHLORIDE
     Indication: Depressed mood
     Dosage: 30 MG, BID
     Dates: start: 20171215, end: 20180120
  3. CYMBALTA [Concomitant]
     Active Substance: DULOXETINE HYDROCHLORIDE
     Dosage: 20 MG, BID
     Dates: start: 20180121, end: 20180123
  4. BENZALIN TABLETS [Concomitant]
     Indication: Insomnia
     Dosage: 10 MG, QD
     Dates: start: 20170810, end: 20180123

REACTIONS (5)
  - Toxic epidermal necrolysis [Unknown]
  - Nasopharyngitis [Unknown]
  - Pyrexia [Unknown]
  - Product use issue [Unknown]
  - Prescribed underdose [Unknown]

NARRATIVE: CASE EVENT DATE: 20180120
